FAERS Safety Report 9159278 (Version 1)
Quarter: 2013Q1

REPORT INFORMATION
  Report Type: Spontaneous
  Country: US (occurrence: None)
  Receive Date: 20130214
  Receipt Date: 20130214
  Transmission Date: 20140127
  Serious: Yes (Other)
  Sender: FDA-Public Use
  Company Number: AUR-APL-2012-05589

PATIENT
  Age: 85 Year
  Sex: Female

DRUGS (18)
  1. AMLODIPINE [Suspect]
     Indication: PRODUCT USED FOR UNKNOWN INDICATION
     Route: 048
  2. LEVOTHYROXINE (LEVOTHYROXINE) [Suspect]
     Indication: PRODUCT USED FOR UNKNOWN INDICATION
     Route: 048
  3. ROPINIROLE HYDROCHLORIDE [Suspect]
     Indication: PRODUCT USED FOR UNKNOWN INDICATION
     Dosage: TAKE 1 TABLET EVERY 8 HOURS (1
     Route: 048
  4. OMEPRAZOLE (OMEPRAZOLE) [Suspect]
     Indication: PRODUCT USED FOR UNKNOWN INDICATION
     Route: 048
  5. SYMBICORT [Suspect]
     Indication: PRODUCT USED FOR UNKNOWN INDICATION
     Route: 048
  6. MAGNESIUM [Suspect]
     Indication: PRODUCT USED FOR UNKNOWN INDICATION
     Route: 048
  7. SYMBICORT [Suspect]
     Indication: PRODUCT USED FOR UNKNOWN INDICATION
     Dosage: 160-4.5 MCG/ACT 1 PUFFS TWICE
  8. OXCARBAZEPINE (OXCARBAZEPINE) TABLET, 300MG [Suspect]
     Indication: PRODUCT USED FOR UNKNOWN INDICATION
     Dosage: 150 MG TABLET (TAKE 1 TABLET 1 1/2 PO TID, ORAL
     Route: 048
  9. VICODIN) [Suspect]
     Indication: PRODUCT USED FOR UNKNOWN INDICATION
     Dosage: 10-325 MG EVERY 4 HRS AS NEEDED, ORAL
     Route: 048
  10. LIDODERM [Suspect]
     Indication: PRODUCT USED FOR UNKNOWN INDICATION
     Route: 062
  11. VOLTAREN [Suspect]
     Indication: PRODUCT USED FOR UNKNOWN INDICATION
     Route: 062
  12. LORAZEPAM (LORAZEPAM) [Suspect]
     Indication: PRODUCT USED FOR UNKNOWN INDICATION
     Dosage: TAKE 1 TABLET EVERY 8 HOURS ( 1MG), ORAL
     Route: 048
  13. FERROUS SULFATE [Suspect]
     Indication: PRODUCT USED FOR UNKNOWN INDICATION
     Route: 048
  14. OXYBUTYNIN (OXYBUTYNIN) [Suspect]
     Indication: PRODUCT USED FOR UNKNOWN INDICATION
  15. DOCUSATE SODIUM [Suspect]
     Indication: PRODUCT USED FOR UNKNOWN INDICATION
     Route: 048
  16. CLARITIN (GLICLAZIDE) [Concomitant]
  17. TYLENOL (PARACETAMOL) [Concomitant]
  18. IMODIUM (LOPERAMIDE [Concomitant]

REACTIONS (5)
  - Malaise [None]
  - Fatigue [None]
  - Nausea [None]
  - Accidental overdose [None]
  - Transient ischaemic attack [None]
